FAERS Safety Report 4519882-8 (Version None)
Quarter: 2004Q4

REPORT INFORMATION
  Report Type: 
  Country: None (occurrence: None)
  Receive Date: 20041201
  Receipt Date: 20041201
  Transmission Date: 20050328
  Serious: Yes (Death)
  Sender: FDA-Public Use
  Company Number: None

PATIENT
  Age: 81 Year
  Sex: Female
  Weight: 77.1115 kg

DRUGS (1)
  1. AMIODARONE HCL [Suspect]
     Indication: ATRIAL FIBRILLATION
     Dosage: 200MG  DAILY   ORAL
     Route: 048
     Dates: start: 20030212, end: 20040510

REACTIONS (8)
  - CANDIDIASIS [None]
  - DRUG INEFFECTIVE [None]
  - DRUG TOXICITY [None]
  - FRACTURE [None]
  - KNEE ARTHROPLASTY [None]
  - OEDEMA PERIPHERAL [None]
  - PULMONARY TOXICITY [None]
  - THYROID DISORDER [None]
